FAERS Safety Report 8720688 (Version 3)
Quarter: 2013Q2

REPORT INFORMATION
  Report Type: Report from Study
  Country: US (occurrence: US)
  Receive Date: 20120813
  Receipt Date: 20130419
  Transmission Date: 20140414
  Serious: Yes (Hospitalization)
  Sender: FDA-Public Use
  Company Number: US-TEVA-353454USA

PATIENT
  Age: 84 Year
  Sex: Male

DRUGS (8)
  1. HYDROCHLOROTHIAZIDE [Suspect]
  2. SAXAGLIPTIN [Suspect]
     Indication: TYPE 2 DIABETES MELLITUS
     Dates: start: 20110909
  3. GLUCOTROL [Suspect]
     Indication: TYPE 2 DIABETES MELLITUS
  4. ASPIRIN [Concomitant]
     Dates: start: 20111202
  5. BETA-BLOCKER [Concomitant]
  6. ANGIOTENSIN CONVERTING ENZYME INHIBITOR [Concomitant]
  7. STATIN [Concomitant]
  8. DIURETICS [Concomitant]

REACTIONS (1)
  - Dehydration [Recovered/Resolved]
